FAERS Safety Report 21964745 (Version 3)
Quarter: 2023Q1

REPORT INFORMATION
  Report Type: Report from Study
  Country: ES (occurrence: ES)
  Receive Date: 20230207
  Receipt Date: 20230328
  Transmission Date: 20230418
  Serious: Yes (Hospitalization)
  Sender: FDA-Public Use
  Company Number: ES-PHARMAMAR-2023PM000064

PATIENT
  Age: 54 Year
  Sex: Male
  Weight: 80 kg

DRUGS (20)
  1. LURBINECTEDIN [Suspect]
     Active Substance: LURBINECTEDIN
     Indication: Small cell lung cancer
     Dosage: 2 MILLIGRAM/SQ. METER, D1Q3W;
     Route: 042
     Dates: start: 20230113, end: 20230113
  2. IRINOTECAN [Suspect]
     Active Substance: IRINOTECAN
     Indication: Small cell lung cancer
     Dosage: 75 MILLIGRAM/SQ. METER, D1D8Q3W;
     Route: 042
     Dates: start: 20230113, end: 20230120
  3. DEXAMETHASONE [Concomitant]
     Active Substance: DEXAMETHASONE
     Indication: Prophylaxis of nausea and vomiting
     Dosage: 10 MILLIGRAM
     Route: 042
     Dates: start: 20230113, end: 20230120
  4. ONDANSETRON [Concomitant]
     Active Substance: ONDANSETRON
     Indication: Prophylaxis of nausea and vomiting
     Dosage: 8 MILLIGRAM
     Route: 042
     Dates: start: 20230113, end: 20230120
  5. ONDANSETRON [Concomitant]
     Active Substance: ONDANSETRON
     Dosage: 8 MILLIGRAM
     Route: 042
     Dates: start: 20230121
  6. ATROPINE [Concomitant]
     Active Substance: ATROPINE
     Indication: Prophylaxis of nausea and vomiting
     Dosage: 0.3 MILLIGRAM
     Dates: start: 20230120, end: 20230120
  7. IBUPROFEN [Concomitant]
     Active Substance: IBUPROFEN
  8. MOVICOL-HALF [Concomitant]
  9. METAMIZOLE [Concomitant]
     Active Substance: METAMIZOLE
  10. ACETAMINOPHEN [Concomitant]
     Active Substance: ACETAMINOPHEN
  11. MORPHINE SULFATE [Concomitant]
     Active Substance: MORPHINE SULFATE
  12. MORPHINE [Concomitant]
     Active Substance: MORPHINE
  13. TOLVAPTAN [Concomitant]
     Active Substance: TOLVAPTAN
  14. FUROSEMIDE [Concomitant]
     Active Substance: FUROSEMIDE
  15. LORAZEPAM [Concomitant]
     Active Substance: LORAZEPAM
  16. OMEPRAZOLE [Concomitant]
     Active Substance: OMEPRAZOLE
  17. BEMIPARIN [Concomitant]
     Active Substance: BEMIPARIN
  18. FOLIC ACID [Concomitant]
     Active Substance: FOLIC ACID
  19. ALLOPURINOL [Concomitant]
     Active Substance: ALLOPURINOL
  20. CYANOCOBALAMIN [Concomitant]
     Active Substance: CYANOCOBALAMIN

REACTIONS (1)
  - Colitis [Recovered/Resolved]

NARRATIVE: CASE EVENT DATE: 20230126
